FAERS Safety Report 16725616 (Version 1)
Quarter: 2019Q3

REPORT INFORMATION
  Report Type: Spontaneous
  Country: US (occurrence: US)
  Receive Date: 20190821
  Receipt Date: 20190821
  Transmission Date: 20191005
  Serious: No
  Sender: FDA-Public Use
  Company Number: US-IPSEN BIOPHARMACEUTICALS, INC.-2019-14670

PATIENT
  Sex: Female

DRUGS (1)
  1. SOMATULINE DEPOT [Suspect]
     Active Substance: LANREOTIDE ACETATE
     Indication: ACROMEGALY
     Route: 065

REACTIONS (7)
  - Joint effusion [Unknown]
  - Nausea [Unknown]
  - Blood glucose increased [Unknown]
  - Diarrhoea [Unknown]
  - Joint stiffness [Unknown]
  - Arthralgia [Unknown]
  - Injection site pain [Unknown]
